FAERS Safety Report 8863057 (Version 3)
Quarter: 2012Q4

REPORT INFORMATION
  Report Type: 
  Country: US (occurrence: US)
  Receive Date: 20121026
  Receipt Date: 20121218
  Transmission Date: 20130627
  Serious: Yes (Hospitalization)
  Sender: FDA-Public Use
  Company Number: US-ASTELLAS-2012US010440

PATIENT
  Sex: Male

DRUGS (2)
  1. MYCAMINE [Suspect]
     Indication: ENDOCARDITIS
     Dosage: 100 mg, Unknown/D
     Route: 042
     Dates: start: 20121017
  2. MYCAMINE [Suspect]
     Indication: FUNGAL INFECTION
     Dosage: 150 mg, UID/QD
     Route: 042
     Dates: start: 20121018, end: 20121021

REACTIONS (2)
  - Off label use [Unknown]
  - Hospitalisation [Unknown]
